FAERS Safety Report 6058151-4 (Version None)
Quarter: 2009Q1

REPORT INFORMATION
  Report Type: 
  Country: None (occurrence: None)
  Receive Date: 20090127
  Receipt Date: 20090119
  Transmission Date: 20090719
  Serious: Yes (Hospitalization)
  Sender: FDA-Public Use
  Company Number: 2008JP005879

PATIENT
  Age: 29 Year
  Sex: Male
  Weight: 52.6 kg

DRUGS (6)
  1. TACROLIMUS [Suspect]
     Indication: LUPUS NEPHRITIS
     Dosage: 3 MG, D, ORAL
     Route: 048
     Dates: start: 20070822
  2. PREDNISOLONE [Concomitant]
  3. VIT K CAP [Concomitant]
  4. CANDESARTAN CILEXETIL [Concomitant]
  5. RABEPRAZOLE SODIUM [Concomitant]
  6. ACTONEL [Concomitant]

REACTIONS (3)
  - INFLAMMATION [None]
  - PERITONITIS LUPUS [None]
  - RETROPERITONEAL FIBROSIS [None]
